FAERS Safety Report 11828935 (Version 2)
Quarter: 2016Q1

REPORT INFORMATION
  Report Type: Spontaneous
  Country: FR (occurrence: FR)
  Receive Date: 20151211
  Receipt Date: 20160120
  Transmission Date: 20160525
  Serious: Yes (Disabling, Other)
  Sender: FDA-Public Use
  Company Number: FR-SEPTODONT-201503113

PATIENT
  Age: 54 Year
  Sex: Female

DRUGS (2)
  1. YRANOL EUG?NOLE, SOLUTION POUR USAGE DENTAIRE [Suspect]
     Active Substance: EUGENOL\LIDOCAINE HYDROCHLORIDE\PHENOL\WOOD CREOSOTE
     Indication: PULPITIS DENTAL
     Route: 061
     Dates: start: 20150707
  2. DELTAZINE 40 MG/ML ADR?NALIN?E AU 1/200.000 [Suspect]
     Active Substance: ARTICAINE\EPINEPHRINE
     Indication: LOCAL ANAESTHESIA
     Dosage: 1/4 CARTRIDGE / 2 INTRALIGAMENTAL INJECTIONS
     Route: 004
     Dates: start: 20150720

REACTIONS (6)
  - Sensitivity of teeth [Not Recovered/Not Resolved]
  - Facial paralysis [Not Recovered/Not Resolved]
  - Paraesthesia oral [Not Recovered/Not Resolved]
  - Hypoaesthesia oral [Not Recovered/Not Resolved]
  - Gingival pain [Recovering/Resolving]
  - Burning sensation [Unknown]

NARRATIVE: CASE EVENT DATE: 2015
